FAERS Safety Report 13108575 (Version 4)
Quarter: 2017Q2

REPORT INFORMATION
  Report Type: Spontaneous
  Country: JP (occurrence: JP)
  Receive Date: 20170112
  Receipt Date: 20170404
  Transmission Date: 20170830
  Serious: Yes (Death, Other)
  Sender: FDA-Public Use
  Company Number: JP-ASTELLAS-2017JP000297AA

PATIENT
  Age: 57 Year
  Sex: Female
  Weight: 52 kg

DRUGS (31)
  1. BREDININ [Suspect]
     Active Substance: MIZORIBINE
     Indication: DERMATOMYOSITIS
     Route: 048
     Dates: start: 20150321, end: 20150520
  2. ENDOXAN                            /00021101/ [Suspect]
     Active Substance: CYCLOPHOSPHAMIDE
     Route: 042
     Dates: start: 20150522, end: 20150522
  3. ENDOXAN                            /00021101/ [Suspect]
     Active Substance: CYCLOPHOSPHAMIDE
     Route: 042
     Dates: start: 20150612, end: 20150612
  4. ENDOXAN                            /00021101/ [Suspect]
     Active Substance: CYCLOPHOSPHAMIDE
     Route: 042
     Dates: start: 20150630, end: 20150630
  5. MOHRUS [Concomitant]
     Active Substance: KETOPROFEN
     Indication: MYALGIA
     Route: 062
     Dates: end: 20150702
  6. METHYLPREDNISOLONE. [Suspect]
     Active Substance: METHYLPREDNISOLONE
     Route: 042
     Dates: start: 20150703, end: 20150705
  7. ONEALFA [Concomitant]
     Active Substance: ALFACALCIDOL
     Indication: OSTEOPOROSIS
     Dosage: 1.0 UG, ONCE DAILY
     Route: 048
     Dates: start: 20140417, end: 20150702
  8. METHYCOBAL [Concomitant]
     Active Substance: METHYLCOBALAMIN
     Indication: NEURALGIA
     Dosage: 500 UG, THRICE DAILY
     Route: 048
     Dates: start: 20140618, end: 20150702
  9. DENOSINE                           /00784201/ [Concomitant]
     Active Substance: GANCICLOVIR
     Indication: PNEUMONIA CYTOMEGALOVIRAL
     Route: 042
     Dates: start: 20150529, end: 20150601
  10. METHYLPREDNISOLONE. [Suspect]
     Active Substance: METHYLPREDNISOLONE
     Route: 048
     Dates: start: 20140407, end: 20140409
  11. ENDOXAN                            /00021101/ [Suspect]
     Active Substance: CYCLOPHOSPHAMIDE
     Indication: INTERSTITIAL LUNG DISEASE
     Route: 042
     Dates: start: 20140416, end: 20140416
  12. METHYLPREDNISOLONE. [Suspect]
     Active Substance: METHYLPREDNISOLONE
     Indication: INTERSTITIAL LUNG DISEASE
     Dosage: UNK UNK, UNKNOWN FREQ.
     Route: 065
  13. TAKEPRON [Concomitant]
     Active Substance: LANSOPRAZOLE
     Indication: PROPHYLAXIS AGAINST GASTROINTESTINAL ULCER
     Route: 048
     Dates: start: 20140407, end: 20150702
  14. LIPIDIL [Concomitant]
     Active Substance: FENOFIBRATE
     Indication: DYSLIPIDAEMIA
     Route: 048
     Dates: start: 20140617, end: 20150702
  15. ACTONEL [Concomitant]
     Active Substance: RISEDRONATE SODIUM
     Indication: OSTEOPOROSIS
     Route: 048
     Dates: end: 20150702
  16. PROGRAF [Suspect]
     Active Substance: TACROLIMUS\TACROLIMUS ANHYDROUS
     Route: 048
     Dates: start: 20140410, end: 20150702
  17. METGLUCO [Concomitant]
     Active Substance: METFORMIN HYDROCHLORIDE
     Indication: DIABETES MELLITUS
     Route: 048
     Dates: end: 20150702
  18. MYSLEE [Concomitant]
     Active Substance: ZOLPIDEM TARTRATE
     Indication: INSOMNIA
     Route: 048
     Dates: start: 20140406, end: 20150702
  19. PROGRAF [Suspect]
     Active Substance: TACROLIMUS\TACROLIMUS ANHYDROUS
     Indication: INTERSTITIAL LUNG DISEASE
     Route: 048
  20. PROGRAF [Suspect]
     Active Substance: TACROLIMUS\TACROLIMUS ANHYDROUS
     Indication: DERMATOMYOSITIS
     Dosage: UNK UNK, UNKNOWN FREQ.
     Route: 065
  21. PREDONINE                          /00016204/ [Suspect]
     Active Substance: PREDNISOLONE ACETATE
     Indication: DERMATOMYOSITIS
     Route: 048
  22. METHYLPREDNISOLONE. [Suspect]
     Active Substance: METHYLPREDNISOLONE
     Dosage: UNK UNK, EVERY 2 WEEKS
     Route: 065
  23. ENDOXAN                            /00021101/ [Suspect]
     Active Substance: CYCLOPHOSPHAMIDE
     Route: 042
     Dates: start: 20140501, end: 20140501
  24. BAKTAR [Concomitant]
     Active Substance: SULFAMETHOXAZOLE\TRIMETHOPRIM
     Indication: INFECTION PROPHYLAXIS
     Route: 048
     Dates: start: 20140416, end: 20150702
  25. DENOSINE                           /00784201/ [Concomitant]
     Active Substance: GANCICLOVIR
     Route: 042
     Dates: start: 20150602, end: 20150625
  26. PREDONINE                          /00016204/ [Suspect]
     Active Substance: PREDNISOLONE ACETATE
     Dosage: UNK UNK, UNKNOWN FREQ.
     Route: 065
  27. METHYLPREDNISOLONE. [Suspect]
     Active Substance: METHYLPREDNISOLONE
     Route: 042
     Dates: start: 20150318, end: 20150320
  28. ENDOXAN                            /00021101/ [Suspect]
     Active Substance: CYCLOPHOSPHAMIDE
     Route: 042
     Dates: start: 20140515, end: 20140515
  29. CYCLOPHOSPHAMIDE. [Concomitant]
     Active Substance: CYCLOPHOSPHAMIDE
     Indication: PRODUCT USED FOR UNKNOWN INDICATION
     Route: 065
  30. PREDONINE                          /00016204/ [Suspect]
     Active Substance: PREDNISOLONE ACETATE
     Route: 048
     Dates: start: 20140410, end: 20150702
  31. WHITE PETROLATUM [Concomitant]
     Active Substance: PETROLATUM
     Indication: XERODERMA
     Route: 061
     Dates: start: 20140406, end: 20150702

REACTIONS (5)
  - Spinal compression fracture [Unknown]
  - Interstitial lung disease [Fatal]
  - Pneumonia bacterial [Fatal]
  - Cystitis [Unknown]
  - Pneumonia cytomegaloviral [Recovering/Resolving]

NARRATIVE: CASE EVENT DATE: 20140518
